FAERS Safety Report 25027534 (Version 3)
Quarter: 2025Q2

REPORT INFORMATION
  Report Type: Spontaneous
  Country: US (occurrence: US)
  Receive Date: 20250301
  Receipt Date: 20250410
  Transmission Date: 20250716
  Serious: Yes (Death, Hospitalization, Other)
  Sender: SANOFI AVENTIS
  Company Number: US-SA-2025SA057386

PATIENT
  Age: 68 Year
  Sex: Female

DRUGS (29)
  1. REZUROCK [Suspect]
     Active Substance: BELUMOSUDIL
     Indication: Graft versus host disease
     Dosage: 200 MG, QD
     Route: 048
     Dates: start: 202501
  2. REZUROCK [Suspect]
     Active Substance: BELUMOSUDIL
     Indication: Acute myeloid leukaemia
  3. LACTOBACILLUS ACIDOPHILUS\LACTOBACILLUS DELBRUECKII SUBSP. BULGARICUS [Concomitant]
     Active Substance: LACTOBACILLUS ACIDOPHILUS\LACTOBACILLUS DELBRUECKII SUBSP. BULGARICUS
  4. LACTOBACILLUS ACIDOPHILUS\LACTOBACILLUS DELBRUECKII SUBSP. BULGARICUS [Concomitant]
     Active Substance: LACTOBACILLUS ACIDOPHILUS\LACTOBACILLUS DELBRUECKII SUBSP. BULGARICUS
  5. FOLIC ACID [Concomitant]
     Active Substance: FOLIC ACID
  6. FOLIC ACID [Concomitant]
     Active Substance: FOLIC ACID
  7. GLYBURIDE [Concomitant]
     Active Substance: GLYBURIDE
  8. GLYBURIDE [Concomitant]
     Active Substance: GLYBURIDE
  9. IMODIUM A-D [Concomitant]
     Active Substance: LOPERAMIDE HYDROCHLORIDE
  10. IMODIUM A-D [Concomitant]
     Active Substance: LOPERAMIDE HYDROCHLORIDE
  11. LOSARTAN [Concomitant]
     Active Substance: LOSARTAN
  12. LOSARTAN [Concomitant]
     Active Substance: LOSARTAN
  13. MAGNESIUM OXIDE [Concomitant]
     Active Substance: MAGNESIUM OXIDE
  14. MELATONIN [Concomitant]
     Active Substance: MELATONIN
  15. VITAMINS [Concomitant]
     Active Substance: VITAMINS
  16. PENTAMIDINE [Concomitant]
     Active Substance: PENTAMIDINE
  17. PEPCID [Concomitant]
     Active Substance: FAMOTIDINE
  18. POSACONAZOLE [Concomitant]
     Active Substance: POSACONAZOLE
  19. POTASSIUM CHLORIDE [Concomitant]
     Active Substance: POTASSIUM CHLORIDE
  20. PREDNISONE [Concomitant]
     Active Substance: PREDNISONE
  21. PREVYMIS [Concomitant]
     Active Substance: LETERMOVIR
  22. PROCHLORPERAZINE [Concomitant]
     Active Substance: PROCHLORPERAZINE
  23. REMERON [Concomitant]
     Active Substance: MIRTAZAPINE
  24. ROSUVASTATIN [Concomitant]
     Active Substance: ROSUVASTATIN
  25. TACROLIMUS [Concomitant]
     Active Substance: TACROLIMUS
  26. TRICOR [Concomitant]
     Active Substance: FENOFIBRATE
  27. URSODIOL [Concomitant]
     Active Substance: URSODIOL
  28. VALTREX [Concomitant]
     Active Substance: VALACYCLOVIR HYDROCHLORIDE
  29. VITAMIN D [Concomitant]
     Active Substance: VITAMIN D NOS

REACTIONS (3)
  - Death [Fatal]
  - Clostridium difficile infection [Recovering/Resolving]
  - Product use in unapproved indication [Unknown]

NARRATIVE: CASE EVENT DATE: 20250101
